FAERS Safety Report 19438149 (Version 3)
Quarter: 2021Q2

REPORT INFORMATION
  Report Type: Spontaneous
  Country: US (occurrence: US)
  Receive Date: 20210619
  Receipt Date: 20210626
  Transmission Date: 20210717
  Serious: Yes (Hospitalization, Other)
  Sender: FDA-Public Use
  Company Number: US-AUROBINDO-AUR-APL-2021-025264

PATIENT
  Age: 15 Year
  Sex: Female
  Weight: 53.1 kg

DRUGS (4)
  1. DIPHENHYDRAMINE. [Suspect]
     Active Substance: DIPHENHYDRAMINE
     Dosage: 1250 MILLIGRAM, IN TOTAL (1250?2500 MG)
     Route: 065
  2. DIPHENHYDRAMINE. [Suspect]
     Active Substance: DIPHENHYDRAMINE
     Indication: PRODUCT USED FOR UNKNOWN INDICATION
     Dosage: 2500 MILLIGRAM, IN TOTAL (1250?2500MG)
     Route: 065
  3. LORAZEPAM. [Suspect]
     Active Substance: LORAZEPAM
     Indication: AGITATION
     Dosage: 7 MILLIGRAM, TWO TIMES A DAY
     Route: 065
  4. PHYSOSTIGMINE [Concomitant]
     Active Substance: PHYSOSTIGMINE
     Indication: TOXICITY TO VARIOUS AGENTS
     Dosage: UNK
     Route: 065

REACTIONS (10)
  - Hypertension [Unknown]
  - Mydriasis [Unknown]
  - Mucosal disorder [Unknown]
  - Somnolence [Unknown]
  - Agitation [Recovered/Resolved]
  - Tachycardia [Unknown]
  - Electrocardiogram QT interval [Unknown]
  - Disorientation [Recovered/Resolved]
  - Drug ineffective [Unknown]
  - Hallucination [Unknown]
